FAERS Safety Report 8574126-5 (Version None)
Quarter: 2012Q3

REPORT INFORMATION
  Report Type: 
  Country: None (occurrence: None)
  Receive Date: 20120806
  Receipt Date: 20120802
  Transmission Date: 20120928
  Serious: Yes (Other)
  Sender: FDA-Public Use
  Company Number: PHHY2012DE067134

PATIENT
  Age: 35 Year
  Sex: Female

DRUGS (2)
  1. RITALIN [Suspect]
     Dosage: 140 MG DAILY
     Route: 048
  2. RITALIN [Suspect]
     Route: 048

REACTIONS (3)
  - MYELITIS [None]
  - THROMBOCYTOPENIA [None]
  - OVERDOSE [None]
